FAERS Safety Report 5887653-6 (Version None)
Quarter: 2008Q3

REPORT INFORMATION
  Report Type: 
  Country: None (occurrence: None)
  Receive Date: 20080918
  Receipt Date: 20080910
  Transmission Date: 20090109
  Serious: Yes (Hospitalization)
  Sender: FDA-Public Use
  Company Number: FR-JNJFOC-20080902353

PATIENT
  Sex: Female

DRUGS (3)
  1. HALDOL [Suspect]
     Dosage: THE DOSE WAS REDUCED.
     Route: 048
  2. HALDOL [Suspect]
     Dosage: THE DOSE WAS PROGRESSIVELY INCREASED.
     Route: 048
  3. HALDOL [Suspect]
     Indication: ANXIETY
     Route: 048

REACTIONS (2)
  - DISTURBANCE IN ATTENTION [None]
  - MALAISE [None]
